FAERS Safety Report 6678219-9 (Version None)
Quarter: 2010Q2

REPORT INFORMATION
  Report Type: 
  Country: None (occurrence: None)
  Receive Date: 20100408
  Receipt Date: 20100408
  Transmission Date: 20101027
  Serious: Yes (Other)
  Sender: FDA-Public Use
  Company Number: None

PATIENT
  Age: 28 Year
  Sex: Female
  Weight: 61.2356 kg

DRUGS (1)
  1. LAMOTRIGINE [Suspect]
     Indication: GRAND MAL CONVULSION
     Dosage: 200 MG TWICE DAILY PO
     Route: 048
     Dates: start: 20090215, end: 20090415

REACTIONS (4)
  - CONVULSION [None]
  - DRUG INEFFECTIVE [None]
  - DYSKINESIA [None]
  - PRODUCT SUBSTITUTION ISSUE [None]
